FAERS Safety Report 4572988-X (Version None)
Quarter: 2005Q1

REPORT INFORMATION
  Report Type: 
  Country: None (occurrence: None)
  Receive Date: 20050203
  Receipt Date: 20050118
  Transmission Date: 20050727
  Serious: Yes (Death)
  Sender: FDA-Public Use
  Company Number: D01200301798

PATIENT
  Age: 73 Year
  Sex: Male
  Weight: 54 kg

DRUGS (2)
  1. CISPLATIN [Suspect]
     Indication: SMALL CELL LUNG CANCER EXTENSIVE STAGE
     Dosage: 80 MG/M2 CONT INTRAVENOUS
     Route: 042
     Dates: start: 20031119, end: 20031119
  2. ETOPOSIDE [Suspect]
     Indication: SMALL CELL LUNG CANCER EXTENSIVE STAGE
     Dosage: 120 MG/M2 GIVEN DAYS 1, 2 AND 3 IN A 30 MIN INFUSION INTRAVENOUS
     Route: 042
     Dates: start: 20031119, end: 20031121

REACTIONS (10)
  - ABDOMINAL PAIN UPPER [None]
  - BACK PAIN [None]
  - FATIGUE [None]
  - HAEMATOCHEZIA [None]
  - HEPATIC HAEMORRHAGE [None]
  - MALAISE [None]
  - METASTASES TO BONE [None]
  - METASTASES TO LIVER [None]
  - SUDDEN DEATH [None]
  - WEIGHT DECREASED [None]
